FAERS Safety Report 9346784 (Version 1)
Quarter: 2013Q2

REPORT INFORMATION
  Report Type: Spontaneous
  Country: US (occurrence: US)
  Receive Date: 20130613
  Receipt Date: 20130613
  Transmission Date: 20140414
  Serious: Yes (Death, Hospitalization)
  Sender: FDA-Public Use
  Company Number: US-B.I. PHARMACEUTICALS,INC./RIDGEFIELD-2013-BI-16283BP

PATIENT
  Sex: Female

DRUGS (1)
  1. PRADAXA [Suspect]
     Dates: start: 201002

REACTIONS (4)
  - Gastrointestinal haemorrhage [Fatal]
  - Haemorrhagic stroke [Fatal]
  - Respiratory failure [Fatal]
  - Sepsis [Fatal]
